FAERS Safety Report 16946139 (Version 1)
Quarter: 2019Q4

REPORT INFORMATION
  Report Type: Spontaneous
  Country: US (occurrence: US)
  Receive Date: 20191022
  Receipt Date: 20191022
  Transmission Date: 20200122
  Serious: No
  Sender: FDA-Public Use
  Company Number: US-PFIZER INC-2018455772

PATIENT
  Age: 55 Year
  Sex: Male
  Weight: 74.84 kg

DRUGS (1)
  1. TESTOSTERONE CIPIONATE [Suspect]
     Active Substance: TESTOSTERONE
     Indication: BLOOD TESTOSTERONE DECREASED
     Dosage: 1 MG, UNK [EVERY TWO WEEKS]

REACTIONS (2)
  - Euphoric mood [Unknown]
  - Underdose [Unknown]
